FAERS Safety Report 15661632 (Version 1)
Quarter: 2018Q4

REPORT INFORMATION
  Report Type: Spontaneous
  Country: BR (occurrence: BR)
  Receive Date: 20181127
  Receipt Date: 20181127
  Transmission Date: 20190205
  Serious: Yes (Other)
  Sender: FDA-Public Use
  Company Number: PHHY2017BR029925

PATIENT
  Sex: Female
  Weight: 68 kg

DRUGS (1)
  1. RITALINA [Suspect]
     Active Substance: METHYLPHENIDATE HYDROCHLORIDE
     Indication: DISTURBANCE IN ATTENTION
     Dosage: 4 DF, QD
     Route: 048

REACTIONS (4)
  - Dependence [Not Recovered/Not Resolved]
  - Overdose [Not Recovered/Not Resolved]
  - Aggression [Not Recovered/Not Resolved]
  - Insomnia [Recovered/Resolved]
